FAERS Safety Report 17898435 (Version 1)
Quarter: 2020Q2

REPORT INFORMATION
  Report Type: Spontaneous
  Country: FR (occurrence: FR)
  Receive Date: 20200615
  Receipt Date: 20200615
  Transmission Date: 20200714
  Serious: Yes (Other)
  Sender: FDA-Public Use
  Company Number: NVSC2020FR164968

PATIENT
  Age: 88 Year
  Sex: Female

DRUGS (6)
  1. ESIDREX [Suspect]
     Active Substance: HYDROCHLOROTHIAZIDE
     Indication: WRONG PATIENT RECEIVED PRODUCT
     Dosage: 0.5 MG, QD
     Route: 048
     Dates: start: 20200513, end: 20200513
  2. MEDIATENSYL [Suspect]
     Active Substance: URAPIDIL
     Indication: WRONG PATIENT RECEIVED PRODUCT
     Dosage: 1 DF
     Route: 048
     Dates: start: 20200513, end: 20200513
  3. TARDYFERON [Suspect]
     Active Substance: FERROUS SULFATE
     Indication: WRONG PATIENT RECEIVED PRODUCT
     Dosage: 1 DF
     Route: 048
     Dates: start: 20200513, end: 20200513
  4. APROVEL [Suspect]
     Active Substance: IRBESARTAN
     Indication: WRONG PATIENT RECEIVED PRODUCT
     Dosage: 1 DF
     Route: 048
     Dates: start: 20200513, end: 20200513
  5. LOXEN (NICARDIPINE HYDROCHLORIDE) [Suspect]
     Active Substance: NICARDIPINE HYDROCHLORIDE
     Indication: WRONG PATIENT RECEIVED PRODUCT
     Dosage: 1 DF
     Route: 048
     Dates: start: 20200513, end: 20200513
  6. ESCITALOPRAM [Suspect]
     Active Substance: ESCITALOPRAM OXALATE
     Indication: WRONG PATIENT RECEIVED PRODUCT
     Dosage: 10 MG
     Route: 048
     Dates: start: 20200513, end: 20200513

REACTIONS (4)
  - Malaise [Recovered/Resolved]
  - Bradycardia [Recovered/Resolved]
  - Wrong patient received product [Recovered/Resolved]
  - Hypotension [Recovered/Resolved]

NARRATIVE: CASE EVENT DATE: 20200513
